FAERS Safety Report 9227800 (Version 1)
Quarter: 2013Q1

REPORT INFORMATION
  Report Type: Spontaneous
  Country: US (occurrence: None)
  Receive Date: 20121031
  Receipt Date: 20121031
  Transmission Date: 20140127
  Serious: No
  Sender: FDA-Public Use
  Company Number: PHEH2012US015621

PATIENT
  Sex: Male
  Weight: 77.1 kg

DRUGS (3)
  1. GILENYA (FTY)CAPSULE, 0.5MG [Suspect]
     Indication: MULTIPLE SCLEROSIS
     Route: 048
     Dates: start: 201012
  2. VESICARE (SILFENACIN) [Concomitant]
  3. AMMITRIPTYLINE (AMITRIPTYLINE) [Concomitant]

REACTIONS (1)
  - Gait disturbance [None]
